FAERS Safety Report 7513429-X (Version None)
Quarter: 2011Q2

REPORT INFORMATION
  Report Type: 
  Country: None (occurrence: None)
  Receive Date: 20110531
  Receipt Date: 20101227
  Transmission Date: 20111010
  Serious: Yes (Hospitalization)
  Sender: FDA-Public Use
  Company Number: US-BAYER-201012584NA

PATIENT
  Age: 52 Year
  Sex: Female
  Weight: 73 kg

DRUGS (13)
  1. YAZ [Suspect]
     Indication: MENOPAUSAL SYMPTOMS
     Dosage: UNK
     Dates: start: 20060111, end: 20090220
  2. CELEBREX [Concomitant]
  3. DILAUDID [Concomitant]
  4. AMITRIPTYLINE HCL [Concomitant]
     Dosage: 20 MG, QD
     Dates: start: 20050101, end: 20080805
  5. OMEPRAZOLE [Concomitant]
  6. ALEVE (CAPLET) [Concomitant]
     Dosage: UNK
     Dates: start: 20050101
  7. CLAFORAN [Concomitant]
  8. YASMIN [Suspect]
     Indication: PRODUCT USED FOR UNKNOWN INDICATION
     Dosage: UNK
     Route: 048
     Dates: start: 20060111, end: 20090220
  9. IMITREX [Concomitant]
     Dosage: UNK
     Dates: start: 20050101
  10. MAGNESIUM CITRATE [Concomitant]
  11. PROTONIX [Concomitant]
  12. CIPROFLOXACIN [Concomitant]
  13. PERI-COLACE [Concomitant]

REACTIONS (3)
  - CHOLECYSTITIS CHRONIC [None]
  - CHOLELITHIASIS [None]
  - BILE DUCT OBSTRUCTION [None]
